FAERS Safety Report 5900241-8 (Version None)
Quarter: 2008Q3

REPORT INFORMATION
  Report Type: 
  Country: None (occurrence: None)
  Receive Date: 20080926
  Receipt Date: 20080922
  Transmission Date: 20090109
  Serious: Yes (Hospitalization)
  Sender: FDA-Public Use
  Company Number: US-GILEAD-2008-0018233

PATIENT
  Sex: Female
  Weight: 131.66 kg

DRUGS (9)
  1. LETAIRIS [Suspect]
     Indication: PULMONARY ARTERIAL HYPERTENSION
     Route: 048
     Dates: start: 20070813
  2. COUMADIN [Concomitant]
     Route: 048
  3. ALDACTONE [Concomitant]
     Route: 048
  4. COZAAR [Concomitant]
     Route: 048
  5. TOPROL-XL [Concomitant]
     Route: 048
  6. LEVOXYL [Concomitant]
     Route: 048
  7. XANAX [Concomitant]
     Route: 048
  8. MUCINEX [Concomitant]
     Route: 048
  9. NASONEX [Concomitant]
     Route: 055

REACTIONS (2)
  - CHEST PAIN [None]
  - COUGH [None]
